FAERS Safety Report 7211529-5 (Version None)
Quarter: 2011Q1

REPORT INFORMATION
  Report Type: 
  Country: None (occurrence: None)
  Receive Date: 20110105
  Receipt Date: 20101227
  Transmission Date: 20110831
  Serious: Yes (Other)
  Sender: FDA-Public Use
  Company Number: CHPA2010JP19457

PATIENT
  Age: 48 Year
  Sex: Male

DRUGS (1)
  1. TAVEGYL [Suspect]
     Dosage: UNK, UNK
     Route: 048
     Dates: start: 20090601, end: 20090601

REACTIONS (1)
  - LIVER DISORDER [None]
